FAERS Safety Report 5901783-1 (Version None)
Quarter: 2008Q3

REPORT INFORMATION
  Report Type: 
  Country: None (occurrence: None)
  Receive Date: 20080926
  Receipt Date: 20080926
  Transmission Date: 20090109
  Serious: Yes (Other)
  Sender: FDA-Public Use
  Company Number: None

PATIENT
  Sex: Male

DRUGS (1)
  1. RISPERIDONE [Suspect]
     Dosage: 0.5MG DAILY
     Dates: start: 20080904, end: 20080909

REACTIONS (1)
  - ELECTROCARDIOGRAM QT PROLONGED [None]
